FAERS Safety Report 17333933 (Version 6)
Quarter: 2021Q3

REPORT INFORMATION
  Report Type: Spontaneous
  Country: JP (occurrence: JP)
  Receive Date: 20200128
  Receipt Date: 20210925
  Transmission Date: 20211014
  Serious: Yes (Hospitalization, Other)
  Sender: FDA-Public Use
  Company Number: JP-AMGEN-JPNSP2020013626

PATIENT
  Age: 66 Year
  Sex: Female
  Weight: 66 kg

DRUGS (15)
  1. TAKEPRON [Concomitant]
     Active Substance: LANSOPRAZOLE
     Dosage: UNK
     Route: 048
  2. DEXAMETHASONE. [Suspect]
     Active Substance: DEXAMETHASONE
     Indication: PLASMA CELL MYELOMA
     Dosage: 20 MG
     Route: 048
  3. REVLIMID [Concomitant]
     Active Substance: LENALIDOMIDE
     Indication: PLASMA CELL MYELOMA
     Dosage: 3 DF
     Route: 048
  4. RANMARK [Suspect]
     Active Substance: DENOSUMAB
     Indication: PRODUCT USED FOR UNKNOWN INDICATION
     Dosage: UNK
     Route: 065
     Dates: end: 20200116
  5. ZOMETA [Concomitant]
     Active Substance: ZOLEDRONIC ACID
     Dosage: UNK
     Route: 065
     Dates: end: 20200116
  6. KYPROLIS [Suspect]
     Active Substance: CARFILZOMIB
     Dosage: 35 MG, ADMINISTERED TWICE?WEEKLY FOR 2 CONSECUTIVE DAYS
     Route: 041
  7. KYPROLIS [Suspect]
     Active Substance: CARFILZOMIB
     Dosage: 85 MG, QW
     Route: 041
  8. REVLIMID [Concomitant]
     Active Substance: LENALIDOMIDE
     Dosage: 2 DF
     Route: 048
  9. KYPROLIS [Suspect]
     Active Substance: CARFILZOMIB
     Dosage: 70 MG, QW
     Route: 041
  10. DEXAMETHASONE. [Suspect]
     Active Substance: DEXAMETHASONE
     Dosage: UNK UNK, QW
     Route: 048
  11. DARZALEX [Suspect]
     Active Substance: DARATUMUMAB
     Indication: PLASMA CELL MYELOMA
     Dosage: UNK
     Route: 065
  12. KYPROLIS [Suspect]
     Active Substance: CARFILZOMIB
     Dosage: FREQUENCY: TWICE A WEEK (1ST DOSE, 35 MG; 2ND DOSE, 40 MG)
     Route: 041
  13. KYPROLIS [Suspect]
     Active Substance: CARFILZOMIB
     Dosage: 40 MG, Q84H
     Route: 041
  14. REVLIMID [Concomitant]
     Active Substance: LENALIDOMIDE
     Dosage: 1 DF
     Route: 048
  15. KYPROLIS [Suspect]
     Active Substance: CARFILZOMIB
     Indication: PLASMA CELL MYELOMA
     Dosage: UNK,  TWICE/WEEK(CONSECUTIVE DAYS)
     Route: 041

REACTIONS (18)
  - Blood pressure increased [Unknown]
  - Hypoaesthesia [Unknown]
  - Headache [Unknown]
  - Feeling abnormal [Unknown]
  - Physical deconditioning [Unknown]
  - Hot flush [Unknown]
  - Pain in extremity [Unknown]
  - Muscle spasms [Recovering/Resolving]
  - Therapeutic response decreased [Unknown]
  - Cardiac discomfort [Unknown]
  - Infusion related reaction [Unknown]
  - Muscle spasms [Unknown]
  - Atypical femur fracture [Unknown]
  - Erythema of eyelid [Unknown]
  - Flushing [Unknown]
  - Headache [Unknown]
  - Dizziness [Unknown]
  - Hypoaesthesia [Recovering/Resolving]

NARRATIVE: CASE EVENT DATE: 201912
